FAERS Safety Report 5267650-4 (Version None)
Quarter: 2007Q1

REPORT INFORMATION
  Report Type: 
  Country: None (occurrence: None)
  Receive Date: 20070316
  Receipt Date: 20060822
  Transmission Date: 20070707
  Serious: Yes (Hospitalization)
  Sender: FDA-Public Use
  Company Number: US-MERCK-0703USA03190

PATIENT
  Age: 66 Year
  Sex: Female
  Weight: 77 kg

DRUGS (1)
  1. ZOCOR [Suspect]
     Route: 048
     Dates: start: 20040701, end: 20040101

REACTIONS (3)
  - GASTROINTESTINAL HAEMORRHAGE [None]
  - MUSCULAR WEAKNESS [None]
  - MYALGIA [None]
